FAERS Safety Report 7788836-0 (Version None)
Quarter: 2011Q3

REPORT INFORMATION
  Report Type: 
  Country: None (occurrence: None)
  Receive Date: 20110930
  Receipt Date: 20110922
  Transmission Date: 20111222
  Serious: Yes (Other)
  Sender: FDA-Public Use
  Company Number: US-UCBSA-041983

PATIENT
  Sex: Female
  Weight: 12.73 kg

DRUGS (9)
  1. LEVOTHYROXINE [Concomitant]
     Dosage: TOTAL DIALY DOSE: 88 MICRO GRAM
     Route: 064
     Dates: start: 20090208
  2. VITAMIN D [Concomitant]
     Indication: HYPOTHYROIDISM
     Dosage: TOTAL DAILY DOSE: 1000 IU
     Route: 064
     Dates: start: 20081203
  3. KEPPRA [Suspect]
     Indication: EPILEPSY
     Route: 064
     Dates: end: 20081201
  4. PRENATAL VITAMINS [Concomitant]
     Indication: PREGNANCY
     Dosage: 1 TABLET DAILY
     Route: 064
     Dates: start: 20081215
  5. HEPARIN [Concomitant]
     Indication: ANTIPHOSPHOLIPID SYNDROME
     Route: 064
     Dates: start: 20090720
  6. LEVETIRACETAM [Suspect]
     Dosage: TOTAL DAILY DOSE: 1500 MG
     Route: 064
     Dates: start: 20081201
  7. FOLIC ACID [Concomitant]
     Indication: PREGNANCY
     Dosage: TOTAL DAILY DOSE: 800 MICRO GRAM
     Route: 064
     Dates: start: 20081203
  8. FIORICET [Concomitant]
     Indication: HEADACHE
     Dosage: 1 TABLET
     Route: 064
     Dates: start: 20090210
  9. LEVOTHYROXINE [Concomitant]
     Indication: HYPOTHYROIDISM
     Dosage: TOTAL DAILY DOSE: 75 MICRO GRAM
     Route: 064
     Dates: end: 20090208

REACTIONS (3)
  - JUVENILE ARTHRITIS [None]
  - FEBRILE CONVULSION [None]
  - MATERNAL EXPOSURE DURING PREGNANCY [None]
